FAERS Safety Report 21667624 (Version 2)
Quarter: 2023Q1

REPORT INFORMATION
  Report Type: Spontaneous
  Country: JP (occurrence: JP)
  Receive Date: 20221201
  Receipt Date: 20230123
  Transmission Date: 20230418
  Serious: Yes (Death, Hospitalization, Other)
  Sender: FDA-Public Use
  Company Number: JP-SA-2022SA488885

PATIENT
  Age: 79 Year
  Sex: Male

DRUGS (8)
  1. OXALIPLATIN [Suspect]
     Active Substance: OXALIPLATIN
     Indication: Colon cancer
     Dosage: UNK, INFUSION, FOLFOX4
     Route: 042
  2. OXALIPLATIN [Suspect]
     Active Substance: OXALIPLATIN
     Indication: Metastases to bone
     Dosage: UNK, INFUSION, MFOLFOX6
     Route: 042
  3. LEVOLEUCOVORIN CALCIUM [Suspect]
     Active Substance: LEVOLEUCOVORIN CALCIUM
     Indication: Colon cancer
     Dosage: UNK, INFUSION, FOLFOX4
     Route: 042
  4. LEVOLEUCOVORIN CALCIUM [Suspect]
     Active Substance: LEVOLEUCOVORIN CALCIUM
     Indication: Metastases to bone
     Dosage: UNK, INFUSION, MFOLFOX6
     Route: 042
  5. FLUOROURACIL [Suspect]
     Active Substance: FLUOROURACIL
     Indication: Colon cancer
     Dosage: UNK, INFUSION, MFOLFOX6
     Route: 042
  6. FLUOROURACIL [Suspect]
     Active Substance: FLUOROURACIL
     Indication: Metastases to bone
     Dosage: UNK, INFUSION, FOLFOX4
     Route: 042
  7. ETHAMBUTOL\ISONIAZID\RIFAMPIN [Suspect]
     Active Substance: ETHAMBUTOL\ISONIAZID\RIFAMPIN
     Indication: Pulmonary tuberculosis
     Dosage: UNK
  8. ETHAMBUTOL\ISONIAZID\RIFAMPIN [Suspect]
     Active Substance: ETHAMBUTOL\ISONIAZID\RIFAMPIN
     Indication: Latent tuberculosis

REACTIONS (6)
  - Pulmonary tuberculosis [Fatal]
  - Pyrexia [Fatal]
  - Lung infiltration [Fatal]
  - Latent tuberculosis [Fatal]
  - Drug-induced liver injury [Unknown]
  - Performance status decreased [Unknown]
